APPROVED DRUG PRODUCT: AVALIDE
Active Ingredient: HYDROCHLOROTHIAZIDE; IRBESARTAN
Strength: 12.5MG;150MG
Dosage Form/Route: TABLET;ORAL
Application: N020758 | Product #002 | TE Code: AB
Applicant: SANOFI AVENTIS US LLC
Approved: Sep 30, 1997 | RLD: Yes | RS: Yes | Type: RX